FAERS Safety Report 16321734 (Version 1)
Quarter: 2019Q2

REPORT INFORMATION
  Report Type: Spontaneous
  Country: BG (occurrence: BG)
  Receive Date: 20190516
  Receipt Date: 20190516
  Transmission Date: 20190711
  Serious: Yes (Other)
  Sender: FDA-Public Use
  Company Number: PHHY2019BG110366

PATIENT
  Age: 60 Year
  Sex: Female

DRUGS (3)
  1. LEVETIRACETAM. [Suspect]
     Active Substance: LEVETIRACETAM
     Indication: GENERALISED TONIC-CLONIC SEIZURE
     Dosage: 1500 MG, UNK
     Route: 065
  2. OXCARBAZEPINE. [Suspect]
     Active Substance: OXCARBAZEPINE
     Indication: GENERALISED TONIC-CLONIC SEIZURE
     Dosage: 1800 MG, UNK
     Route: 065
  3. VALPROATE [Suspect]
     Active Substance: VALPROIC ACID
     Indication: GENERALISED TONIC-CLONIC SEIZURE
     Dosage: 1500 MG, UNK
     Route: 065

REACTIONS (3)
  - Focal dyscognitive seizures [Unknown]
  - Generalised tonic-clonic seizure [Unknown]
  - Condition aggravated [Unknown]
